FAERS Safety Report 16405869 (Version 6)
Quarter: 2019Q3

REPORT INFORMATION
  Report Type: Report from Study
  Country: IT (occurrence: IT)
  Receive Date: 20190607
  Receipt Date: 20190710
  Transmission Date: 20191004
  Serious: Yes (Hospitalization, Other)
  Sender: FDA-Public Use
  Company Number: IT-PFIZER INC-2019245298

PATIENT
  Age: 83 Year
  Sex: Female

DRUGS (5)
  1. WARFARIN [Interacting]
     Active Substance: WARFARIN
     Indication: ATRIAL FIBRILLATION
     Dosage: UNK
     Route: 048
  2. ATORVASTATIN CALCIUM. [Interacting]
     Active Substance: ATORVASTATIN CALCIUM
     Dosage: UNK
  3. ALLOPURINOL. [Interacting]
     Active Substance: ALLOPURINOL
     Indication: HYPERURICAEMIA
     Dosage: UNK
  4. PANTOPRAZOLE [Suspect]
     Active Substance: PANTOPRAZOLE
     Dosage: UNK
  5. DICLOFENAC [Interacting]
     Active Substance: DICLOFENAC
     Dosage: UNK

REACTIONS (7)
  - Asthenia [Recovering/Resolving]
  - International normalised ratio increased [Recovering/Resolving]
  - Labelled drug-drug interaction medication error [Unknown]
  - Melaena [Recovering/Resolving]
  - Anaemia [Recovering/Resolving]
  - Dyspnoea [Recovering/Resolving]
  - Gastrointestinal haemorrhage [Recovering/Resolving]
